FAERS Safety Report 5366588-1 (Version None)
Quarter: 2007Q2

REPORT INFORMATION
  Report Type: 
  Country: None (occurrence: None)
  Receive Date: 20070622
  Receipt Date: 20070608
  Transmission Date: 20071010
  Serious: Yes (Other)
  Sender: FDA-Public Use
  Company Number: BR-PFIZER INC-2007048983

PATIENT

DRUGS (1)
  1. VIRACEPT [Suspect]
     Indication: HIV INFECTION
     Route: 048

REACTIONS (2)
  - DIARRHOEA [None]
  - OSTEONECROSIS [None]
